FAERS Safety Report 10133340 (Version 3)
Quarter: 2014Q2

REPORT INFORMATION
  Report Type: Report from Study
  Country: GB (occurrence: GB)
  Receive Date: 20140428
  Receipt Date: 20140505
  Transmission Date: 20141212
  Serious: Yes (Hospitalization)
  Sender: FDA-Public Use
  Company Number: GB-GLAXOSMITHKLINE-B0965726B

PATIENT
  Age: 84 Year
  Sex: Male
  Weight: 77.6 kg

DRUGS (23)
  1. OFATUMUMAB [Suspect]
     Indication: CHRONIC LYMPHOCYTIC LEUKAEMIA
     Dosage: 1000MG CYCLIC
     Route: 042
     Dates: start: 20140210
  2. BENDAMUSTINE [Suspect]
     Indication: CHRONIC LYMPHOCYTIC LEUKAEMIA
     Route: 042
     Dates: start: 20140210
  3. PARACETAMOL [Concomitant]
     Route: 048
     Dates: start: 20140210
  4. CHLORPHENIRAMINE [Concomitant]
     Route: 042
     Dates: start: 20140210
  5. PREDNISOLONE [Concomitant]
  6. ALLOPURINOL [Concomitant]
     Route: 048
     Dates: start: 20140210, end: 20140323
  7. METOCLOPRAMIDE [Concomitant]
     Route: 048
     Dates: start: 20140210
  8. ACICLOVIR [Concomitant]
     Route: 048
     Dates: start: 20140210
  9. GRANULOCYTE COLONY-STIMULATING FACTOR NOS [Concomitant]
  10. ASPIRIN [Concomitant]
     Indication: PROPHYLAXIS
     Dosage: 75MG PER DAY
     Route: 048
     Dates: start: 20000315
  11. ATORVASTATIN [Concomitant]
     Indication: HYPERTRIGLYCERIDAEMIA
     Dosage: 40MG PER DAY
     Route: 048
     Dates: start: 20090615
  12. GLICLAZIDE [Concomitant]
     Indication: HYPERGLYCAEMIA
     Dosage: 40MG PER DAY
     Route: 048
     Dates: start: 20010615
  13. KEPPRA [Concomitant]
     Indication: CONVULSION
     Dosage: 500MG TWICE PER DAY
     Route: 048
     Dates: start: 20050202
  14. LAMICTAL [Concomitant]
     Indication: CONVULSION
     Dosage: 250MG TWICE PER DAY
     Route: 048
     Dates: start: 20020215
  15. RAMIPRIL [Concomitant]
     Indication: HYPERTENSION
     Dosage: 10MG PER DAY
     Route: 048
     Dates: start: 20050225
  16. HYDROCORTISONE [Concomitant]
     Indication: CHRONIC LYMPHOCYTIC LEUKAEMIA
     Route: 042
     Dates: start: 20140210
  17. TRAMADOL [Concomitant]
     Indication: ABDOMINAL PAIN
     Dosage: 100MG PER DAY
     Route: 048
     Dates: start: 20140114, end: 20140412
  18. OMEPRAZOLE [Concomitant]
     Indication: DYSPEPSIA
     Dosage: 20MG PER DAY
     Route: 048
     Dates: start: 20140210
  19. ONDANSETRON [Concomitant]
     Indication: VOMITING
     Dosage: 8MG TWICE PER DAY
     Route: 048
     Dates: start: 20140210
  20. TAMSULOSIN [Concomitant]
     Indication: URINARY RETENTION
     Dosage: 400MCG PER DAY
     Route: 048
  21. FINASTERIDE [Concomitant]
     Indication: URINARY RETENTION
     Dosage: 5MG PER DAY
     Route: 048
     Dates: start: 20131218
  22. PREDNISOLONE [Concomitant]
     Indication: RASH
     Dosage: 20MG PER DAY
     Route: 048
     Dates: start: 20140402, end: 20140406
  23. ZOPICLONE [Concomitant]
     Indication: INSOMNIA
     Dosage: 7.5MG PER DAY
     Route: 048
     Dates: start: 20140414, end: 20140421

REACTIONS (1)
  - Infusion related reaction [Recovered/Resolved]
